FAERS Safety Report 7338066-1 (Version None)
Quarter: 2011Q1

REPORT INFORMATION
  Report Type: 
  Country: None (occurrence: None)
  Receive Date: 20110308
  Receipt Date: 20110222
  Transmission Date: 20110831
  Serious: Yes (Other)
  Sender: FDA-Public Use
  Company Number: PHHY2010BR46322

PATIENT
  Age: 60 Year
  Sex: Female
  Weight: 84 kg

DRUGS (6)
  1. LOSARTAN POTASSIUM [Concomitant]
     Indication: HYPERTENSION
     Dosage: UNK
     Route: 048
     Dates: start: 20040101
  2. ASPIRIN [Concomitant]
     Indication: ANTICOAGULANT THERAPY
     Dosage: 1 DF(100MG), QD (1 TABLET PER DAY)
     Route: 048
     Dates: start: 20040101
  3. DIOVAN [Suspect]
     Indication: HYPERTENSION
     Dosage: 1 DF, BID
     Route: 048
     Dates: start: 20080101
  4. SIMVASTATIN [Concomitant]
     Indication: BLOOD CHOLESTEROL
     Dosage: 1 DF, QD (20 MG, 1 TABLET PER DAY)
     Route: 048
     Dates: start: 20040101
  5. LOSARTAN POTASSIUM [Concomitant]
     Dosage: 1 DF(50/12.5 MG), BID (1 TABLET TWICE DAILY)
     Dates: start: 20090101
  6. LOSARTAN POTASSIUM [Concomitant]
     Dosage: 1 DF(50/12.5 MG), QD( 1 TABLET ONCE DAILY)

REACTIONS (1)
  - DIABETES MELLITUS [None]
